FAERS Safety Report 7136588-X (Version None)
Quarter: 2010Q4

REPORT INFORMATION
  Report Type: 
  Country: None (occurrence: None)
  Receive Date: 20101206
  Receipt Date: 20091123
  Transmission Date: 20110411
  Serious: No
  Sender: FDA-Public Use
  Company Number: 2009BI038660

PATIENT
  Sex: Female

DRUGS (1)
  1. TYSABRI [Suspect]
     Indication: MULTIPLE SCLEROSIS
     Route: 042
     Dates: start: 20080326

REACTIONS (5)
  - ASTHENIA [None]
  - KNEE OPERATION [None]
  - LOWER LIMB FRACTURE [None]
  - MENISCUS LESION [None]
  - PNEUMONIA [None]
